FAERS Safety Report 20867558 (Version 1)
Quarter: 2022Q2

REPORT INFORMATION
  Report Type: Report from Study
  Country: CA (occurrence: CA)
  Receive Date: 20220524
  Receipt Date: 20220524
  Transmission Date: 20220721
  Serious: Yes (Other)
  Sender: FDA-Public Use
  Company Number: CA-PFIZER INC-2021541725

PATIENT
  Age: 62 Year
  Sex: Female

DRUGS (21)
  1. RITUXIMAB [Suspect]
     Active Substance: RITUXIMAB
     Indication: Vasculitis
     Dosage: 500 MG
     Route: 042
  2. RITUXIMAB [Suspect]
     Active Substance: RITUXIMAB
     Indication: Sjogren^s syndrome
     Dosage: 500 MG, 1 EVERY 15 DAYS
     Route: 042
  3. RITUXIMAB [Suspect]
     Active Substance: RITUXIMAB
     Indication: Vasculitis
     Dosage: 1000 MG, 1 EVERY 15 DAYS
     Route: 042
  4. RITUXIMAB [Suspect]
     Active Substance: RITUXIMAB
     Indication: Sjogren^s syndrome
     Dosage: 500 MG, 1 EVERY 15 DAYS
     Route: 042
  5. BENADRYL [Concomitant]
     Active Substance: DIPHENHYDRAMINE HYDROCHLORIDE
     Indication: Premedication
     Dosage: 50 MG
     Route: 048
  6. BENADRYL [Concomitant]
     Active Substance: DIPHENHYDRAMINE HYDROCHLORIDE
     Indication: Pharyngeal paraesthesia
     Dosage: 25 MG
     Route: 030
  7. COLCHICINE [Concomitant]
     Active Substance: COLCHICINE
  8. DEXILANT [Concomitant]
     Active Substance: DEXLANSOPRAZOLE
  9. FAMOTIDINE [Concomitant]
     Active Substance: FAMOTIDINE
  10. GLUCOSE OXIDASE/LACTOFERRIN/LACTOPEROXIDASE/LYSOZYME [Concomitant]
  11. HYDROXYCHLOROQUINE SULFATE [Concomitant]
     Active Substance: HYDROXYCHLOROQUINE SULFATE
  12. LYRICA [Concomitant]
     Active Substance: PREGABALIN
  13. METHYLPREDNISOLONE SODIUM SUCCINATE [Concomitant]
     Active Substance: METHYLPREDNISOLONE SODIUM SUCCINATE
     Indication: Premedication
     Dosage: 100 MG
     Route: 042
  14. NIFEDIPINE [Concomitant]
     Active Substance: NIFEDIPINE
  15. PANTOPRAZOLE [Concomitant]
     Active Substance: PANTOPRAZOLE
  16. PREDNISONE [Concomitant]
     Active Substance: PREDNISONE
  17. RESTASIS [Concomitant]
     Active Substance: CYCLOSPORINE
  18. TYLENOL [Concomitant]
     Active Substance: ACETAMINOPHEN
     Indication: Premedication
     Dosage: 650 MG
     Route: 048
  19. ASPIRIN [Concomitant]
     Active Substance: ASPIRIN
  20. COVID-19 VACCINE [Concomitant]
  21. ACETAMINOPHEN [Concomitant]
     Active Substance: ACETAMINOPHEN
     Indication: Premedication
     Dosage: 650 MG
     Route: 048

REACTIONS (9)
  - Pericarditis [Unknown]
  - Atelectasis [Not Recovered/Not Resolved]
  - Fatigue [Not Recovered/Not Resolved]
  - Pulmonary granuloma [Not Recovered/Not Resolved]
  - Respiratory disorder [Not Recovered/Not Resolved]
  - Interstitial lung disease [Unknown]
  - Vasculitis [Unknown]
  - Respiratory tract infection [Unknown]
  - Off label use [Unknown]
